FAERS Safety Report 18226619 (Version 3)
Quarter: 2023Q1

REPORT INFORMATION
  Report Type: Report from Study
  Country: DE (occurrence: None)
  Receive Date: 20200903
  Receipt Date: 20230221
  Transmission Date: 20230418
  Serious: Yes (Hospitalization)
  Sender: FDA-Public Use
  Company Number: DE-ROCHE-2662579

PATIENT
  Age: 69 Year
  Sex: Female
  Weight: 70 kg

DRUGS (18)
  1. ATEZOLIZUMAB [Suspect]
     Active Substance: ATEZOLIZUMAB
     Indication: Ovarian cancer
     Dosage: LAST DOSE PRIOR TO EVENT: 04/AUG/2020
     Route: 042
     Dates: start: 20200121
  2. BEVACIZUMAB [Suspect]
     Active Substance: BEVACIZUMAB
     Indication: Ovarian cancer
     Dosage: LAST DOSE PRIOR TO EVENT: 04/AUG/2020
     Route: 042
     Dates: start: 20200204, end: 20200828
  3. DOXORUBICIN [Suspect]
     Active Substance: DOXORUBICIN
     Indication: Ovarian cancer
     Dosage: LAST DOSE PRIOR TO EVENT: 04/AUG/2020
     Route: 042
     Dates: start: 20200121
  4. ELIQUIS [Concomitant]
     Active Substance: APIXABAN
  5. MAGNESIUM [Concomitant]
     Active Substance: MAGNESIUM
  6. CANDESARTAN [Concomitant]
     Active Substance: CANDESARTAN
     Dosage: HALF-0- HALF
     Dates: start: 20200804
  7. CANDESARTAN [Concomitant]
     Active Substance: CANDESARTAN
  8. DEKRISTOL 20 000 [Concomitant]
     Dosage: 1  WOCHE
  9. ENOXAPARIN SODIUM [Concomitant]
     Active Substance: ENOXAPARIN SODIUM
     Dosage: AN CHT TAGEN
  10. FOSFOMYCIN [Concomitant]
     Active Substance: FOSFOMYCIN
     Dosage: 3000
     Dates: start: 20200324, end: 20200324
  11. TRIMETHOPRIM [Concomitant]
     Active Substance: TRIMETHOPRIM
     Dates: start: 20200409, end: 20200418
  12. AMOXICILLIN\CLAVULANATE POTASSIUM [Concomitant]
     Active Substance: AMOXICILLIN\CLAVULANATE POTASSIUM
     Dosage: 875/125 MG
     Dates: start: 20200414, end: 20200418
  13. LERCANIDIPINE [Concomitant]
     Active Substance: LERCANIDIPINE
  14. METOPROLOL SUCCINATE [Concomitant]
     Active Substance: METOPROLOL SUCCINATE
  15. TORSEMIDE [Concomitant]
     Active Substance: TORSEMIDE
  16. TORSEMIDE [Concomitant]
     Active Substance: TORSEMIDE
  17. URAPIDIL [Concomitant]
     Active Substance: URAPIDIL
  18. VOLTAREN [Concomitant]
     Active Substance: DICLOFENAC SODIUM
     Dosage: CREAM BED TIME

REACTIONS (4)
  - Acute kidney injury [Not Recovered/Not Resolved]
  - Tubulointerstitial nephritis [Not Recovered/Not Resolved]
  - Thrombotic microangiopathy [Recovered/Resolved with Sequelae]
  - Haematuria [Recovered/Resolved]

NARRATIVE: CASE EVENT DATE: 20200818
